FAERS Safety Report 18781476 (Version 4)
Quarter: 2021Q3

REPORT INFORMATION
  Report Type: Other
  Country: ES (occurrence: ES)
  Receive Date: 20210125
  Receipt Date: 20210901
  Transmission Date: 20211014
  Serious: No
  Sender: FDA-Public Use
  Company Number: ES-ROCHE-2755225

PATIENT
  Age: 50 Year
  Sex: Male
  Weight: 72 kg

DRUGS (7)
  1. OCRELIZUMAB. [Suspect]
     Active Substance: OCRELIZUMAB
     Dosage: DOSING FORMULATION: 300 MG/250 ML
     Route: 042
     Dates: start: 20200130, end: 20200130
  2. METHYLPREDNISOLONE. [Concomitant]
     Active Substance: METHYLPREDNISOLONE
     Indication: PREMEDICATION
     Dosage: SUBSEQUENT DOSE: 30/JAN/2020, 09/JUL/2020, 19/JAN/2021
     Route: 042
     Dates: start: 20200116, end: 20200116
  3. OCRELIZUMAB. [Suspect]
     Active Substance: OCRELIZUMAB
     Indication: PRIMARY PROGRESSIVE MULTIPLE SCLEROSIS
     Dosage: 300 MG ONCE IN 2 WEEKS THEN 600 MG ONCE IN 6 MONTHS.?DOSING FORMULATION: 300 MG/250 ML
     Route: 042
     Dates: start: 20200116, end: 20200116
  4. PARACETAMOL [Concomitant]
     Active Substance: ACETAMINOPHEN
     Indication: PREMEDICATION
     Dosage: SUBSEQUENT DOSE: 30/JAN/2020, 09/JUL/2020, 19/JAN/2021
     Route: 042
     Dates: start: 20200116, end: 20200116
  5. CLONAZEPAM. [Concomitant]
     Active Substance: CLONAZEPAM
     Route: 048
  6. OCRELIZUMAB. [Suspect]
     Active Substance: OCRELIZUMAB
     Dosage: DOSING FORMULATION: 600 MG/500 ML
     Route: 042
     Dates: start: 20200709, end: 20200709
  7. OCRELIZUMAB. [Suspect]
     Active Substance: OCRELIZUMAB
     Dosage: DOSING FORMULATION: 600 MG/500 ML
     Route: 042
     Dates: start: 20210119, end: 20210121

REACTIONS (1)
  - COVID-19 [Recovered/Resolved]

NARRATIVE: CASE EVENT DATE: 202012
